FAERS Safety Report 17060746 (Version 1)
Quarter: 2019Q4

REPORT INFORMATION
  Report Type: Spontaneous
  Country: NL (occurrence: FR)
  Receive Date: 20191121
  Receipt Date: 20191121
  Transmission Date: 20200122
  Serious: Yes (Life-Threatening)
  Sender: FDA-Public Use
  Company Number: FR-FRESENIUS KABI-FK201912814

PATIENT
  Age: 61 Year
  Sex: Female
  Weight: 62 kg

DRUGS (5)
  1. PROPOFOL (MANUFACTURER UNKNOWN) [Suspect]
     Active Substance: PROPOFOL
     Indication: GENERAL ANAESTHESIA
     Route: 042
     Dates: start: 20191017, end: 20191017
  2. VANCOMYCIN [Suspect]
     Active Substance: VANCOMYCIN
     Indication: GENERAL ANAESTHESIA
     Route: 041
     Dates: start: 20191017, end: 20191017
  3. SUFENTANIL CITRATE. [Suspect]
     Active Substance: SUFENTANIL CITRATE
     Indication: GENERAL ANAESTHESIA
     Route: 042
     Dates: start: 20191017, end: 20191017
  4. KETAMINE [Suspect]
     Active Substance: KETAMINE
     Indication: GENERAL ANAESTHESIA
     Route: 042
     Dates: start: 20191017, end: 20191017
  5. CISATRACURIUM. [Suspect]
     Active Substance: CISATRACURIUM
     Indication: GENERAL ANAESTHESIA
     Route: 042
     Dates: start: 20191017, end: 20191017

REACTIONS (1)
  - Anaphylactic shock [Recovered/Resolved]

NARRATIVE: CASE EVENT DATE: 20191017
